FAERS Safety Report 5970204-5 (Version None)
Quarter: 2008Q4

REPORT INFORMATION
  Report Type: 
  Country: None (occurrence: None)
  Receive Date: 20081126
  Receipt Date: 20081106
  Transmission Date: 20090506
  Serious: No
  Sender: FDA-Public Use
  Company Number: US-ABBOTT-08P-163-0481903-00

PATIENT
  Sex: Female
  Weight: 77.18 kg

DRUGS (8)
  1. SIMCOR [Suspect]
     Indication: BLOOD CHOLESTEROL INCREASED
     Route: 048
     Dates: start: 20081008, end: 20081011
  2. SIMCOR [Suspect]
     Indication: BLOOD TRIGLYCERIDES INCREASED
  3. ALDACTAZIDE-A [Concomitant]
     Indication: HYPERTENSION
     Route: 048
     Dates: start: 19780101
  4. GLYPAZIDE [Concomitant]
     Indication: DIABETES MELLITUS
     Dosage: 2 IN AM, 2 IN PM
     Route: 048
  5. METFORMIN HCL [Concomitant]
     Indication: DIABETES MELLITUS
     Dosage: 2 IN AM, 1 AT LUNCH, 2 IN PM
     Route: 048
  6. RANITIDINE [Concomitant]
     Indication: GASTRIC DISORDER
     Route: 048
  7. CONJUGATED ESTROGENS [Concomitant]
     Indication: HYSTERECTOMY
     Dosage: AS REQUIRED
     Route: 061
  8. METRONIDAZOLE [Concomitant]
     Indication: DIABETIC ULCER
     Dosage: AS REQUIRED
     Route: 061

REACTIONS (3)
  - FEELING ABNORMAL [None]
  - NAUSEA [None]
  - PRURITUS [None]
